FAERS Safety Report 9051290 (Version 1)
Quarter: 2013Q1

REPORT INFORMATION
  Report Type: Spontaneous
  Country: NL (occurrence: NL)
  Receive Date: 20130206
  Receipt Date: 20130206
  Transmission Date: 20140127
  Serious: Yes (Death, Hospitalization)
  Sender: FDA-Public Use
  Company Number: PHHY2013NL004843

PATIENT
  Sex: Female

DRUGS (3)
  1. ZOMETA [Suspect]
     Indication: BREAST CANCER METASTATIC
     Dosage: 4MG/ 100 ML EVERY 28 DAYS
     Dates: start: 20121207
  2. ZOMETA [Suspect]
     Dosage: 4MG/ 100 ML EVERY 28 DAYS
     Dates: start: 20121218
  3. ZOMETA [Suspect]
     Dosage: 4MG/ 100 ML EVERY 28 DAYS
     Dates: start: 20130115

REACTIONS (4)
  - Death [Fatal]
  - Metastases to central nervous system [Unknown]
  - Brain oedema [Unknown]
  - Headache [Recovered/Resolved]
